FAERS Safety Report 12599102 (Version 1)
Quarter: 2016Q3

REPORT INFORMATION
  Report Type: Spontaneous
  Country: US (occurrence: US)
  Receive Date: 20160727
  Receipt Date: 20160727
  Transmission Date: 20161109
  Serious: No
  Sender: FDA-Public Use
  Company Number: US-SA-2015SA131394

PATIENT
  Age: 47 Year
  Sex: Male

DRUGS (1)
  1. AMBIEN CR [Suspect]
     Active Substance: ZOLPIDEM TARTRATE
     Indication: SLEEP DISORDER
     Route: 048
     Dates: start: 20150813

REACTIONS (7)
  - Dyspepsia [Unknown]
  - Malaise [Unknown]
  - Drug ineffective [Unknown]
  - Muscle spasms [Unknown]
  - Product odour abnormal [Unknown]
  - Dysphoria [Not Recovered/Not Resolved]
  - Headache [Not Recovered/Not Resolved]
